FAERS Safety Report 4557244-8 (Version None)
Quarter: 2005Q1

REPORT INFORMATION
  Report Type: 
  Country: None (occurrence: None)
  Receive Date: 20050118
  Receipt Date: 20050107
  Transmission Date: 20050727
  Serious: Yes (Hospitalization)
  Sender: FDA-Public Use
  Company Number: 044-0981-M0100447

PATIENT
  Age: 48 Year
  Sex: Male
  Weight: 77 kg

DRUGS (6)
  1. ATORVASTATIN (ATORVASTATIN) [Suspect]
     Indication: ISCHAEMIC HEART DISEASE PROPHYLAXIS
     Dosage: SEE IMAGE, ORAL
     Route: 048
     Dates: start: 19990419, end: 19990621
  2. ATORVASTATIN (ATORVASTATIN) [Suspect]
     Indication: ISCHAEMIC HEART DISEASE PROPHYLAXIS
     Dosage: SEE IMAGE, ORAL
     Route: 048
     Dates: start: 19990705
  3. ATENOLOL [Concomitant]
  4. SALBUTAMOL (SALBUTAMOL) [Concomitant]
  5. PRAVASTATIN [Concomitant]
  6. ASPIRIN [Concomitant]

REACTIONS (2)
  - ANAL FISTULA [None]
  - PERIANAL ABSCESS [None]
